FAERS Safety Report 4564029-5 (Version None)
Quarter: 2005Q1

REPORT INFORMATION
  Report Type: 
  Country: None (occurrence: None)
  Receive Date: 20050128
  Receipt Date: 20040310
  Transmission Date: 20050727
  Serious: No
  Sender: FDA-Public Use
  Company Number: US-BRISTOL-MYERS SQUIBB COMPANY-12530838

PATIENT
  Age: 53 Year
  Sex: Female
  Weight: 56 kg

DRUGS (4)
  1. CEFZIL [Suspect]
     Indication: BRONCHITIS
     Dosage: SAMPLES
     Route: 048
     Dates: start: 20040305, end: 20040310
  2. LEVOXYL [Concomitant]
  3. B12 [Concomitant]
  4. ALEVE [Concomitant]

REACTIONS (3)
  - ARTHRALGIA [None]
  - CHILLS [None]
  - TREMOR [None]
